FAERS Safety Report 10733273 (Version 1)
Quarter: 2015Q1

REPORT INFORMATION
  Report Type: Report from Study
  Country: US (occurrence: US)
  Receive Date: 20150123
  Receipt Date: 20150123
  Transmission Date: 20150721
  Serious: Yes (Other)
  Sender: FDA-Public Use
  Company Number: US-BAYER-2015-008447

PATIENT
  Sex: Female

DRUGS (1)
  1. MIRENA [Suspect]
     Active Substance: LEVONORGESTREL
     Indication: CONTRACEPTION
     Dosage: 20 MCG/24HR, CONT
     Route: 015
     Dates: end: 201405

REACTIONS (8)
  - Anxiety [None]
  - Tonsillolith [None]
  - Alopecia [None]
  - Loss of libido [Recovered/Resolved]
  - Eczema [Recovered/Resolved]
  - Abnormal weight gain [Recovering/Resolving]
  - Psychotic disorder [None]
  - Abdominal distension [None]
